FAERS Safety Report 18766585 (Version 3)
Quarter: 2022Q1

REPORT INFORMATION
  Report Type: Report from Study
  Country: DE (occurrence: DE)
  Receive Date: 20210121
  Receipt Date: 20220105
  Transmission Date: 20220423
  Serious: Yes (Death)
  Sender: FDA-Public Use
  Company Number: DE-SUN PHARMACEUTICAL INDUSTRIES LTD-2021RR-276635

PATIENT
  Age: 77 Year
  Sex: Female

DRUGS (8)
  1. SONIDEGIB [Suspect]
     Active Substance: SONIDEGIB
     Indication: Basal cell carcinoma
     Dosage: 200 MILLIGRAM, DAILY
     Route: 048
     Dates: start: 20200116
  2. Ebrantil 90 [Concomitant]
     Indication: Pre-existing disease
     Dosage: 90 MILLIGRAM, DAILY
     Route: 048
  3. L-Thyroxin beta 25 [Concomitant]
     Indication: Pre-existing disease
     Dosage: 25 MICROGRAM, DAILY
     Route: 048
  4. Ramipril 1A Pharma 2.5 [Concomitant]
     Indication: Pre-existing disease
     Dosage: 2.5 MILLIGRAM, TID
     Route: 048
  5. DIETARY SUPPLEMENT [Concomitant]
     Active Substance: DIETARY SUPPLEMENT
     Indication: Pre-existing disease
     Dosage: DOSE AS REQUIRED, DAILY
     Route: 065
  6. Metoprolol Succinat 47.5 [Concomitant]
     Indication: Pre-existing disease
     Dosage: 47.5 MILLIGRAM, BID
     Route: 048
  7. Turfa gamma [Concomitant]
     Indication: Prophylaxis
     Dosage: DOSE AS REQUIRED, DAILY
     Route: 048
  8. Opipramol neurexpharm 50 [Concomitant]
     Indication: Pre-existing disease
     Dosage: 50 MILLIGRAM, DAILY TWICE
     Route: 048

REACTIONS (1)
  - Cardiac failure [Fatal]

NARRATIVE: CASE EVENT DATE: 20201214
